FAERS Safety Report 7336173-0 (Version None)
Quarter: 2011Q1

REPORT INFORMATION
  Report Type: 
  Country: None (occurrence: None)
  Receive Date: 20110307
  Receipt Date: 20110301
  Transmission Date: 20110831
  Serious: Yes (Hospitalization)
  Sender: FDA-Public Use
  Company Number: BR-PFIZER INC-2011042731

PATIENT
  Age: 3 Year
  Sex: Male

DRUGS (1)
  1. SILDENAFIL CITRATE [Suspect]
     Indication: PULMONARY HYPERTENSION
     Dosage: 12.5 MG, 2X/DAY
     Route: 048

REACTIONS (6)
  - PULMONARY OEDEMA [None]
  - OEDEMA DUE TO CARDIAC DISEASE [None]
  - GENERALISED OEDEMA [None]
  - VASODILATATION [None]
  - BLOOD ALBUMIN ABNORMAL [None]
  - IMPAIRED HEALING [None]
